FAERS Safety Report 8407518 (Version 4)
Quarter: 2017Q1

REPORT INFORMATION
  Report Type: Spontaneous
  Country: CA (occurrence: CA)
  Receive Date: 20120215
  Receipt Date: 20170209
  Transmission Date: 20170429
  Serious: No
  Sender: FDA-Public Use
  Company Number: PHHY2011CA95769

PATIENT
  Sex: Female

DRUGS (4)
  1. SANDOSTATIN LAR DEPOT [Suspect]
     Active Substance: OCTREOTIDE ACETATE
     Indication: ACRAL OVERGROWTH
     Dosage: 20 MG EVERY 4 WEEKS
     Route: 030
     Dates: start: 20111022
  2. SANDOSTATIN LAR DEPOT [Suspect]
     Active Substance: OCTREOTIDE ACETATE
     Dosage: 10 MG EVERY 4 WEEKS
     Route: 030
  3. SANDOSTATIN [Suspect]
     Active Substance: OCTREOTIDE ACETATE
     Indication: PRODUCT USED FOR UNKNOWN INDICATION
     Dosage: UNK
     Route: 058
     Dates: start: 1992
  4. VITAMIN B [Concomitant]
     Active Substance: VITAMIN B
     Indication: PRODUCT USED FOR UNKNOWN INDICATION
     Route: 065

REACTIONS (12)
  - Influenza [Unknown]
  - Rash pruritic [Unknown]
  - Vision blurred [Recovering/Resolving]
  - Rash [Unknown]
  - Alopecia [Unknown]
  - Loss of consciousness [Recovered/Resolved]
  - Injection site pain [Unknown]
  - Hyperhidrosis [Recovering/Resolving]
  - Balance disorder [Unknown]
  - Asthenia [Not Recovered/Not Resolved]
  - Paraesthesia [Recovering/Resolving]
  - Rash macular [Unknown]
